FAERS Safety Report 7909697-2 (Version None)
Quarter: 2011Q4

REPORT INFORMATION
  Report Type: 
  Country: None (occurrence: None)
  Receive Date: 20111111
  Receipt Date: 20111104
  Transmission Date: 20120403
  Serious: Yes (Hospitalization, Other)
  Sender: FDA-Public Use
  Company Number: HK-GLAXOSMITHKLINE-B0761828A

PATIENT
  Age: 30 Year
  Sex: Female

DRUGS (1)
  1. LAMICTAL [Suspect]
     Indication: BIPOLAR DISORDER
     Dosage: 125MG PER DAY
     Route: 065
     Dates: start: 20110701

REACTIONS (4)
  - STEVENS-JOHNSON SYNDROME [None]
  - CONJUNCTIVITIS [None]
  - MOUTH ULCERATION [None]
  - LIP SWELLING [None]
